FAERS Safety Report 6868758-X (Version None)
Quarter: 2010Q3

REPORT INFORMATION
  Report Type: 
  Country: None (occurrence: None)
  Receive Date: 20100722
  Receipt Date: 20080604
  Transmission Date: 20110219
  Serious: No
  Sender: FDA-Public Use
  Company Number: US-PFIZER INC-2008049433

PATIENT
  Sex: Female
  Weight: 42.727 kg

DRUGS (3)
  1. CHANTIX [Suspect]
     Indication: SMOKING CESSATION THERAPY
     Dates: start: 20070101, end: 20080603
  2. ATIVAN [Concomitant]
  3. LORTAB [Concomitant]

REACTIONS (1)
  - MUSCLE SPASMS [None]
